FAERS Safety Report 18321478 (Version 1)
Quarter: 2020Q3

REPORT INFORMATION
  Report Type: Spontaneous
  Country: US (occurrence: US)
  Receive Date: 20200928
  Receipt Date: 20200928
  Transmission Date: 20201103
  Serious: Yes (Other)
  Sender: FDA-Public Use
  Company Number: US-PURDUE-USA-2020-0167873

PATIENT
  Age: 48 Year
  Sex: Male

DRUGS (11)
  1. MORPHINE SULFATE EXTENDED?RELEASE TABLETS (RHODES 74?769, 74?862) [Suspect]
     Active Substance: MORPHINE SULFATE
     Indication: NECK INJURY
     Dosage: UNK
     Route: 048
  2. OXYCONTIN [Suspect]
     Active Substance: OXYCODONE HYDROCHLORIDE
     Indication: NECK INJURY
     Dosage: UNK
     Route: 048
  3. DILAUDID [Suspect]
     Active Substance: HYDROMORPHONE HYDROCHLORIDE
     Indication: NECK INJURY
     Dosage: UNK
     Route: 048
  4. OXYCODONE/ ACETAMINOPHEN TABLETS [Suspect]
     Active Substance: ACETAMINOPHEN\OXYCODONE HYDROCHLORIDE
     Indication: NECK INJURY
     Dosage: UNK
     Route: 048
  5. BUTRANS [Suspect]
     Active Substance: BUPRENORPHINE
     Indication: NECK INJURY
     Dosage: UNK
     Route: 062
  6. OXYCODONE HCL CR TABLETS (SIMILAR TO NDA 22?272) [Suspect]
     Active Substance: OXYCODONE HYDROCHLORIDE
     Indication: NECK INJURY
     Dosage: UNK
     Route: 048
  7. OXYIR [Suspect]
     Active Substance: OXYCODONE HYDROCHLORIDE
     Indication: NECK INJURY
     Dosage: UNK
     Route: 065
  8. MS CONTIN [Suspect]
     Active Substance: MORPHINE SULFATE
     Indication: NECK INJURY
     Dosage: UNK
     Route: 048
  9. RYZOLT [Suspect]
     Active Substance: TRAMADOL HYDROCHLORIDE
     Indication: NECK INJURY
     Dosage: UNK
     Route: 065
  10. BUPRENORPHINE TRANSDERMAL PATCH (SIMILAR TO NDA 21?306) [Suspect]
     Active Substance: BUPRENORPHINE
     Indication: NECK INJURY
     Dosage: UNK
     Route: 062
  11. HYDROMORPHONE TABLETS [Suspect]
     Active Substance: HYDROMORPHONE
     Indication: NECK INJURY
     Dosage: UNK
     Route: 048

REACTIONS (5)
  - Road traffic accident [Recovered/Resolved with Sequelae]
  - Drug dependence [Not Recovered/Not Resolved]
  - Post-traumatic pain [Unknown]
  - Injury [Unknown]
  - Sleep disorder [Unknown]

NARRATIVE: CASE EVENT DATE: 20150923
